FAERS Safety Report 9541096 (Version 1)
Quarter: 2013Q3

REPORT INFORMATION
  Report Type: Spontaneous
  Country: US (occurrence: CZ)
  Receive Date: 20130923
  Receipt Date: 20130923
  Transmission Date: 20140515
  Serious: Yes (Death, Other)
  Sender: FDA-Public Use
  Company Number: 2013SP006604

PATIENT
  Age: 53 Year
  Sex: Female
  Weight: 60 kg

DRUGS (3)
  1. HALOPERIDOL DECANOATE [Suspect]
     Indication: PRODUCT USED FOR UNKNOWN INDICATION
  2. ZOTEPINE [Suspect]
     Indication: PRODUCT USED FOR UNKNOWN INDICATION
  3. CHLORPROTHIXENE [Suspect]
     Indication: PRODUCT USED FOR UNKNOWN INDICATION

REACTIONS (2)
  - Toxicity to various agents [Fatal]
  - Gastrointestinal necrosis [Fatal]
